FAERS Safety Report 25590741 (Version 2)
Quarter: 2025Q3

REPORT INFORMATION
  Report Type: Spontaneous
  Country: US (occurrence: US)
  Receive Date: 20250722
  Receipt Date: 20250725
  Transmission Date: 20251020
  Serious: Yes (Other)
  Sender: PIERRE FABRE MEDICAMENT
  Company Number: US-PFM-2025-03457

PATIENT
  Sex: Male
  Weight: 10.898 kg

DRUGS (1)
  1. HEMANGEOL [Suspect]
     Active Substance: PROPRANOLOL HYDROCHLORIDE
     Indication: Haemangioma
     Dosage: 3.5 ML, BID (2/DAY)

REACTIONS (2)
  - Haematochezia [Recovered/Resolved]
  - Constipation [Recovered/Resolved]
